FAERS Safety Report 8004520-2 (Version None)
Quarter: 2011Q4

REPORT INFORMATION
  Report Type: 
  Country: None (occurrence: None)
  Receive Date: 20111221
  Receipt Date: 20111221
  Transmission Date: 20120403
  Serious: Yes (Hospitalization)
  Sender: FDA-Public Use
  Company Number: None

PATIENT
  Age: 79 Year
  Sex: Male
  Weight: 84 kg

DRUGS (5)
  1. COLACE [Concomitant]
  2. THALIDOMIDE [Suspect]
     Indication: MULTIPLE MYELOMA
     Dosage: 150MG EOD PO RECENT X3 MOS
     Route: 048
  3. M.V.I. [Concomitant]
  4. SINGULAIR [Concomitant]
  5. THALIDOMIDE [Suspect]
     Dosage: 100 MG EOD PO
     Route: 048

REACTIONS (4)
  - SYNCOPE [None]
  - HAEMOGLOBIN DECREASED [None]
  - BRADYCARDIA [None]
  - HAEMATOCRIT DECREASED [None]
